FAERS Safety Report 7749133-2 (Version None)
Quarter: 2011Q3

REPORT INFORMATION
  Report Type: 
  Country: None (occurrence: None)
  Receive Date: 20110909
  Receipt Date: 20110825
  Transmission Date: 20111222
  Serious: Yes (Hospitalization)
  Sender: FDA-Public Use
  Company Number: TPA2011A05395

PATIENT
  Age: 60 Year
  Sex: Male

DRUGS (1)
  1. FEBURIC (FEBUXOSTAT) [Suspect]
     Dosage: 10 MG (10 MG, 1 IN 1 D), ORAL, DOSE INCREASED
     Route: 048
     Dates: start: 20110709

REACTIONS (8)
  - ARTHRALGIA [None]
  - WHITE BLOOD CELL COUNT INCREASED [None]
  - ASPARTATE AMINOTRANSFERASE INCREASED [None]
  - GAMMA-GLUTAMYLTRANSFERASE INCREASED [None]
  - MALAISE [None]
  - BLOOD BILIRUBIN INCREASED [None]
  - ALANINE AMINOTRANSFERASE INCREASED [None]
  - LIVER DISORDER [None]
